FAERS Safety Report 7825823-8 (Version None)
Quarter: 2011Q4

REPORT INFORMATION
  Report Type: 
  Country: None (occurrence: None)
  Receive Date: 20111019
  Receipt Date: 20111018
  Transmission Date: 20120403
  Serious: Yes (Hospitalization)
  Sender: FDA-Public Use
  Company Number: NL-ROCHE-796269

PATIENT
  Sex: Male
  Weight: 79 kg

DRUGS (6)
  1. OMEPRAZOLE [Concomitant]
     Indication: PROPHYLAXIS AGAINST GASTROINTESTINAL ULCER
     Dosage: LAST DOSE: 07 AUG 2011.
     Route: 048
  2. CYTARABINE [Suspect]
     Indication: MALIGNANT LYMPHOID NEOPLASM
     Dosage: LAST DOSE PRIO SAE: 25 JUL 2011, THERAPY DELAYED
     Route: 042
  3. MABTHERA [Suspect]
     Indication: MALIGNANT LYMPHOID NEOPLASM
     Dosage: DATE OF LAST DOSE PRIOR TO SAE: 23 JULY 2011, THERAPY DELAYED
     Route: 042
  4. CISPLATIN [Suspect]
     Indication: MALIGNANT LYMPHOID NEOPLASM
     Dosage: LAST DOSE PRIOR SAE: 24 JUL 2011, THERAPY DELAYED
     Route: 042
  5. DEXAMETHASONE [Suspect]
     Indication: MALIGNANT LYMPHOID NEOPLASM
     Dosage: LAST DOSE: 26 JUL 2011, THERAPY DELAYED
     Route: 042
  6. AUGMENTIN '125' [Concomitant]
     Indication: URINARY TRACT INFECTION
     Dosage: LAST DOSE; 07 AUG 2011. DOSE: 3 X 625 MG

REACTIONS (2)
  - INTESTINAL ISCHAEMIA [None]
  - ILEUS [None]
